FAERS Safety Report 5119620-4 (Version None)
Quarter: 2006Q4

REPORT INFORMATION
  Report Type: 
  Country: None (occurrence: None)
  Receive Date: 20061003
  Receipt Date: 20060907
  Transmission Date: 20070319
  Serious: Yes (Hospitalization)
  Sender: FDA-Public Use
  Company Number: JP-JPN-A200603579

PATIENT
  Age: 70 Year
  Sex: Male
  Weight: 69 kg

DRUGS (5)
  1. VALTREX [Suspect]
     Indication: HERPES ZOSTER
     Dosage: 1000MG THREE TIMES PER DAY
     Route: 048
     Dates: start: 20060902, end: 20060907
  2. PEON [Suspect]
     Indication: BACK PAIN
     Route: 048
     Dates: start: 20060901, end: 20060907
  3. TERNELIN [Concomitant]
     Indication: BACK PAIN
     Route: 048
     Dates: start: 20060901, end: 20060907
  4. PRORENAL [Concomitant]
     Indication: BACK PAIN
     Route: 048
     Dates: start: 20060901, end: 20060907
  5. SOLON [Concomitant]
     Indication: GASTRITIS
     Route: 048
     Dates: start: 20060901, end: 20060907

REACTIONS (3)
  - BLOOD CREATININE INCREASED [None]
  - NAUSEA [None]
  - RENAL DISORDER [None]
